FAERS Safety Report 10086025 (Version 2)
Quarter: 2014Q2

REPORT INFORMATION
  Report Type: Spontaneous
  Country: IT (occurrence: None)
  Receive Date: 20140416
  Receipt Date: 20140422
  Transmission Date: 20141212
  Serious: Yes (Life-Threatening, Other)
  Sender: FDA-Public Use
  Company Number: AUR-APL-2014-04624

PATIENT
  Age: 63 Year
  Sex: Male
  Weight: 68 kg

DRUGS (5)
  1. GLIBENCLAMIDE METFORMIN (SIL-NORBORAL) [Suspect]
     Indication: PRODUCT USED FOR UNKNOWN INDICATION
     Dosage: 1 D
     Route: 048
     Dates: start: 20120101, end: 20121218
  2. MICARDIS [Concomitant]
  3. CLEAXANE [Concomitant]
  4. ATORVASTATIN [Concomitant]
  5. METFORMIN (METFORMIN) [Suspect]
     Indication: PRODUCT USED FOR UNKNOWN INDICATION
     Dosage: 1 D
     Route: 048
     Dates: start: 20120101, end: 20121218

REACTIONS (8)
  - Multi-organ failure [None]
  - Lactic acidosis [None]
  - Toxicity to various agents [None]
  - Nausea [None]
  - Vomiting [None]
  - Blood creatinine increased [None]
  - Dialysis [None]
  - Overdose [None]
